FAERS Safety Report 6651482-6 (Version None)
Quarter: 2010Q1

REPORT INFORMATION
  Report Type: 
  Country: None (occurrence: None)
  Receive Date: 20100325
  Receipt Date: 20100317
  Transmission Date: 20100710
  Serious: Yes (Hospitalization)
  Sender: FDA-Public Use
  Company Number: JP-BAXTER-2010BH003331

PATIENT
  Age: 56 Year
  Sex: Female

DRUGS (16)
  1. ENDOXAN BAXTER [Suspect]
     Indication: BREAST CANCER
     Route: 048
     Dates: start: 20090605, end: 20100113
  2. ENDOXAN BAXTER [Suspect]
     Route: 048
     Dates: start: 20080606, end: 20080625
  3. ENDOXAN BAXTER [Suspect]
     Route: 065
     Dates: start: 20100303
  4. FURTULON [Suspect]
     Indication: BREAST CANCER
     Route: 048
     Dates: start: 20090605, end: 20100113
  5. FURTULON [Suspect]
     Route: 065
     Dates: start: 20100303
  6. FURTULON [Suspect]
     Route: 065
     Dates: start: 20080606, end: 20080625
  7. MEDROXYPROGESTERONE ACETATE [Suspect]
     Indication: BREAST CANCER
     Route: 065
     Dates: start: 20100303
  8. MEDROXYPROGESTERONE ACETATE [Suspect]
     Route: 048
     Dates: start: 20090605, end: 20100113
  9. MEDROXYPROGESTERONE ACETATE [Suspect]
     Route: 065
     Dates: start: 20080606, end: 20080625
  10. RADIOTHERAPY [Suspect]
     Indication: BREAST CANCER
     Route: 065
     Dates: start: 20081014, end: 20081027
  11. HORMONE THERAPY [Suspect]
     Indication: BREAST CANCER
     Route: 065
     Dates: start: 20080626, end: 20090605
  12. ZOMETA [Concomitant]
     Indication: METASTASES TO BONE
     Route: 041
     Dates: start: 20080709
  13. FERROMIA [Concomitant]
     Indication: ANAEMIA
     Route: 048
     Dates: start: 20080606, end: 20100113
  14. URSO 250 [Concomitant]
     Indication: HEPATIC FUNCTION ABNORMAL
     Route: 048
     Dates: start: 20090814, end: 20100128
  15. PROHEPARUM [Concomitant]
     Indication: HEPATIC FUNCTION ABNORMAL
     Route: 048
     Dates: start: 20100113, end: 20100128
  16. LOXONIN [Concomitant]
     Indication: CANCER PAIN
     Route: 048
     Dates: start: 20080606

REACTIONS (1)
  - HEPATIC FUNCTION ABNORMAL [None]
